FAERS Safety Report 18723659 (Version 1)
Quarter: 2021Q1

REPORT INFORMATION
  Report Type: Spontaneous
  Country: US (occurrence: US)
  Receive Date: 20210108
  Receipt Date: 20210108
  Transmission Date: 20210419
  Serious: No
  Sender: FDA-Public Use
  Company Number: None

PATIENT
  Sex: Female

DRUGS (1)
  1. ZEPOSIA [Suspect]
     Active Substance: OZANIMOD HYDROCHLORIDE
     Indication: MULTIPLE SCLEROSIS
     Route: 048
     Dates: start: 20201225

REACTIONS (7)
  - Loss of personal independence in daily activities [None]
  - Urinary tract infection [None]
  - Asthenia [None]
  - Respiratory tract congestion [None]
  - Headache [None]
  - Fatigue [None]
  - Hypoaesthesia [None]
